FAERS Safety Report 16587486 (Version 2)
Quarter: 2020Q1

REPORT INFORMATION
  Report Type: Spontaneous
  Country: GB (occurrence: GB)
  Receive Date: 20190717
  Receipt Date: 20200123
  Transmission Date: 20200409
  Serious: Yes (Death, Life-Threatening, Other)
  Sender: FDA-Public Use
  Company Number: GB-MYLANLABS-2019M1066996

PATIENT
  Age: 77 Year
  Sex: Male
  Weight: 104 kg

DRUGS (20)
  1. METOCLOPRAMIDE. [Concomitant]
     Active Substance: METOCLOPRAMIDE
     Indication: NAUSEA
     Dosage: USE AS DIRECTED
     Dates: start: 20181115, end: 20181213
  2. CYCLIZINE [Concomitant]
     Active Substance: CYCLIZINE
     Dosage: USE AS DIRECTED AS PER PALLIATIVE CARE DRUG CHART
     Dates: start: 20181019
  3. LOPERAMIDE [Concomitant]
     Active Substance: LOPERAMIDE
     Indication: DIARRHOEA
     Dosage: TAKE ONE FOUR TIMES A DAY AS REQUIRED
     Dates: start: 20190117, end: 20190124
  4. HALOPERIDOL. [Concomitant]
     Active Substance: HALOPERIDOL
     Indication: HALLUCINATION
     Dosage: IN PALLIATIVE CARE
     Dates: start: 20190122
  5. RANITIDINE. [Concomitant]
     Active Substance: RANITIDINE
     Dosage: USE AS DIRECTED FOR SYRINGE DRIVER
     Dates: start: 20180817
  6. HYOSCINE BUTYLBROMIDE [Concomitant]
     Active Substance: BUTYLSCOPOLAMINE BROMIDE
     Dosage: USE AS DIRECTED AS PER PALLIATIVE CARE DRUG CHART
     Dates: start: 20190122
  7. FINASTERIDE. [Concomitant]
     Active Substance: FINASTERIDE
     Indication: PROSTATOMEGALY
     Dosage: 1 DOSAGE FORM, QD
     Dates: start: 20180817
  8. WATER FOR INJECTION [Concomitant]
     Active Substance: WATER
     Dosage: USE AS DIRECTED: AMEND QUANTITY TO REQUIRED
     Dates: start: 20181115, end: 20181213
  9. OXYCODONE HYDROCHLORIDE. [Concomitant]
     Active Substance: OXYCODONE HYDROCHLORIDE
     Dosage: 5MG (HALF OF ONE MILLILITER) EVERY 4 HOURS AS REQUIRED
     Dates: start: 20181221, end: 20181222
  10. MEZOLAR [Concomitant]
     Active Substance: FENTANYL
     Indication: PAIN
     Dosage: 1 DOSAGE FORM, Q3D
     Dates: start: 20181115
  11. LEVOMEPROMAZINE [Concomitant]
     Active Substance: LEVOMEPROMAZINE
     Indication: NAUSEA
     Dosage: IN PALLIATIVE CARE
     Dates: start: 20190124
  12. HUMULIN L [Concomitant]
     Active Substance: INSULIN HUMAN
     Dosage: 18 INTERNATIONAL UNIT, QD
     Dates: start: 20180817
  13. THIAMINE. [Concomitant]
     Active Substance: THIAMINE
     Dosage: 1 DOSAGE FORM, QD
     Dates: start: 20180817
  14. OMEPRAZOLE. [Suspect]
     Active Substance: OMEPRAZOLE
     Dosage: 20 MILLIGRAM
     Dates: start: 201603
  15. PARACETAMOL [Concomitant]
     Active Substance: ACETAMINOPHEN
     Dosage: 2 TO BE TAKEN FOUR TIMES DAILY WHEN REQUIRED
     Dates: start: 20180817
  16. MIDAZOLAM HYDROCHLORIDE. [Concomitant]
     Active Substance: MIDAZOLAM HYDROCHLORIDE
     Indication: RESTLESSNESS
     Dosage: IN PALLIATIVE CARE
     Dates: start: 20181115, end: 20181213
  17. ATORVASTATIN [Concomitant]
     Active Substance: ATORVASTATIN
     Indication: HYPERCHOLESTEROLAEMIA
     Dosage: 1 DOSAGE FORM, QD
     Dates: start: 20180817
  18. OMEPRAZOLE. [Suspect]
     Active Substance: OMEPRAZOLE
     Indication: PRODUCT USED FOR UNKNOWN INDICATION
     Dosage: 20 MILLIGRAM
     Dates: start: 20180403
  19. HUMULIN M3 [Concomitant]
     Active Substance: INSULIN HUMAN
     Indication: DIABETES MELLITUS
     Dosage: USE AS DIRECTED
     Dates: start: 20180817
  20. PIVMECILLINAM [Concomitant]
     Active Substance: AMDINOCILLIN PIVOXIL
     Dosage: UNK
     Dates: start: 20181220, end: 20181223

REACTIONS (2)
  - Tubulointerstitial nephritis [Not Recovered/Not Resolved]
  - Acute kidney injury [Fatal]

NARRATIVE: CASE EVENT DATE: 201704
